FAERS Safety Report 21723209 (Version 1)
Quarter: 2022Q4

REPORT INFORMATION
  Report Type: Spontaneous
  Country: US (occurrence: None)
  Receive Date: 20221212
  Receipt Date: 20221212
  Transmission Date: 20230113
  Serious: No
  Sender: FDA-Public Use
  Company Number: None

PATIENT
  Sex: Female

DRUGS (12)
  1. VIGABATRIN [Suspect]
     Active Substance: VIGABATRIN
     Indication: Lennox-Gastaut syndrome
     Dosage: FREQUENCY : TWICE A DAY;?
     Route: 048
  2. VALTOCO [Concomitant]
     Active Substance: DIAZEPAM
  3. KEPPRA [Concomitant]
     Active Substance: LEVETIRACETAM
  4. RUFINAMIDE [Concomitant]
     Active Substance: RUFINAMIDE
  5. DIASTAT PEDIATRIC [Concomitant]
  6. CETIRIZINE HCL ALLERGY CH [Concomitant]
  7. ALBUTEROL SULFATE [Concomitant]
     Active Substance: ALBUTEROL SULFATE
  8. TRIAMCINOLONE ACETONIDE [Concomitant]
     Active Substance: TRIAMCINOLONE ACETONIDE
  9. CERAVE HYDRATING FACIAL C [Concomitant]
  10. EUCRISA [Concomitant]
     Active Substance: CRISABOROLE
  11. MUPIROCIN [Concomitant]
     Active Substance: MUPIROCIN
  12. TOPIRAMATE [Concomitant]
     Active Substance: TOPIRAMATE

REACTIONS (3)
  - Therapy interrupted [None]
  - Eczema [None]
  - Therapy non-responder [None]
